FAERS Safety Report 14584016 (Version 1)
Quarter: 2018Q1

REPORT INFORMATION
  Report Type: Spontaneous
  Country: US (occurrence: US)
  Receive Date: 20180228
  Receipt Date: 20180228
  Transmission Date: 20180509
  Serious: Yes (Hospitalization)
  Sender: FDA-Public Use
  Company Number: US-OTSUKA-DJ201402237

PATIENT

DRUGS (1)
  1. ABILIFY [Suspect]
     Active Substance: ARIPIPRAZOLE
     Indication: SCHIZOPHRENIA
     Route: 048
     Dates: start: 20110111

REACTIONS (9)
  - Sinus headache [Unknown]
  - Adverse event [Unknown]
  - Nasopharyngitis [Unknown]
  - Oropharyngeal pain [Unknown]
  - Tinnitus [Unknown]
  - Abnormal behaviour [Unknown]
  - Tremor [Unknown]
  - Pyrexia [Unknown]
  - Influenza [Unknown]
